FAERS Safety Report 16916387 (Version 5)
Quarter: 2020Q1

REPORT INFORMATION
  Report Type: Report from Study
  Country: US (occurrence: US)
  Receive Date: 20191014
  Receipt Date: 20200305
  Transmission Date: 20200409
  Serious: Yes (Hospitalization)
  Sender: FDA-Public Use
  Company Number: US-ACTELION-A-NJ2019-189122

PATIENT
  Age: 34 Year
  Sex: Female
  Weight: 51.7 kg

DRUGS (5)
  1. OPSUMIT [Suspect]
     Active Substance: MACITENTAN
     Indication: PULMONARY ARTERIAL HYPERTENSION
     Dosage: 10 MG, QD
     Route: 048
     Dates: start: 20171212
  2. FLOLAN [Suspect]
     Active Substance: EPOPROSTENOL SODIUM
     Indication: PRODUCT USED FOR UNKNOWN INDICATION
     Dosage: UNK, CONT INFUS
     Route: 042
  3. VELETRI [Suspect]
     Active Substance: EPOPROSTENOL
     Dosage: 30 NG/KG, PER MIN
     Route: 042
     Dates: end: 20200212
  4. VELETRI [Suspect]
     Active Substance: EPOPROSTENOL
     Indication: PULMONARY ARTERIAL HYPERTENSION
     Dosage: 28 NG/KG, PER MIN
     Route: 042
  5. SILDENAFIL. [Concomitant]
     Active Substance: SILDENAFIL

REACTIONS (28)
  - Device related infection [Unknown]
  - Hypotension [Unknown]
  - Dyspnoea [Unknown]
  - Dermatitis contact [Not Recovered/Not Resolved]
  - Multiple allergies [Unknown]
  - Dyspnoea exertional [Unknown]
  - Allergy to chemicals [Unknown]
  - Cough [Unknown]
  - Catheter site erythema [Unknown]
  - Application site erythema [Not Recovered/Not Resolved]
  - Catheterisation cardiac [Unknown]
  - Eye swelling [Unknown]
  - Pyrexia [Unknown]
  - Device issue [Unknown]
  - Device dislocation [Unknown]
  - Ocular hyperaemia [Unknown]
  - Dizziness [Unknown]
  - Malaise [Unknown]
  - Catheter site irritation [Unknown]
  - Application site vesicles [Not Recovered/Not Resolved]
  - Catheter management [Unknown]
  - Catheter site pruritus [Unknown]
  - Sensitivity to weather change [Unknown]
  - Eye pruritus [Unknown]
  - Headache [Unknown]
  - Staphylococcal bacteraemia [Unknown]
  - Catheter site swelling [Unknown]
  - Unevaluable event [Unknown]

NARRATIVE: CASE EVENT DATE: 20190322
